FAERS Safety Report 5731512-6 (Version None)
Quarter: 2008Q2

REPORT INFORMATION
  Report Type: 
  Country: None (occurrence: None)
  Receive Date: 20080506
  Receipt Date: 20080506
  Transmission Date: 20081010
  Serious: Yes (Life-Threatening)
  Sender: FDA-Public Use
  Company Number: None

PATIENT
  Age: 44 Year
  Sex: Male
  Weight: 154.223 kg

DRUGS (1)
  1. DIGITEK .25MG MYLAN [Suspect]
     Indication: CARDIAC FAILURE
     Dosage: .25MG ONCE A DAY PO
     Route: 048
     Dates: start: 20080412, end: 20080502

REACTIONS (3)
  - HYPOTENSION [None]
  - NAUSEA [None]
  - VOMITING [None]
